FAERS Safety Report 7814184-6 (Version None)
Quarter: 2011Q4

REPORT INFORMATION
  Report Type: 
  Country: None (occurrence: None)
  Receive Date: 20111014
  Receipt Date: 20111010
  Transmission Date: 20120403
  Serious: Yes (Hospitalization)
  Sender: FDA-Public Use
  Company Number: US-ROXANE LABORATORIES, INC.-2011-RO-01445RO

PATIENT
  Age: 12 Year
  Sex: Female

DRUGS (8)
  1. LEVOTHYROXINE SODIUM [Concomitant]
     Indication: AUTOIMMUNE THYROIDITIS
  2. VITAMIN D [Concomitant]
  3. ANTIOXIDANTS [Concomitant]
  4. OXCARBAZEPINE [Suspect]
     Dosage: 150 MG
  5. OXCARBAZEPINE [Suspect]
     Indication: CONVULSION
     Dates: start: 20070101
  6. OXCARBAZEPINE [Suspect]
     Dosage: 600 MG
  7. VITAMIN B COMPLEX CAP [Concomitant]
  8. LOVAZA [Concomitant]

REACTIONS (5)
  - SERUM SEROTONIN INCREASED [None]
  - CONVULSION [None]
  - COMA [None]
  - LABORATORY TEST ABNORMAL [None]
  - AMMONIA INCREASED [None]
